FAERS Safety Report 5291315-6 (Version None)
Quarter: 2007Q2

REPORT INFORMATION
  Report Type: 
  Country: None (occurrence: None)
  Receive Date: 20070409
  Receipt Date: 20070328
  Transmission Date: 20071010
  Serious: Yes (Hospitalization)
  Sender: FDA-Public Use
  Company Number: JP-PFIZER INC-2007027517

PATIENT
  Age: 50 Year
  Sex: Male

DRUGS (6)
  1. JZOLOFT [Suspect]
     Dosage: DAILY DOSE:75MG
     Route: 048
     Dates: start: 20061120, end: 20070207
  2. ALCOHOL [Suspect]
  3. PAXIL [Concomitant]
  4. LANDSEN [Concomitant]
  5. LEXOTAN [Concomitant]
  6. GASMOTIN [Concomitant]

REACTIONS (2)
  - INCREASED APPETITE [None]
  - OBSESSIVE-COMPULSIVE DISORDER [None]
